FAERS Safety Report 25370886 (Version 2)
Quarter: 2025Q3

REPORT INFORMATION
  Report Type: Spontaneous
  Country: US (occurrence: US)
  Receive Date: 20250528
  Receipt Date: 20250714
  Transmission Date: 20251021
  Serious: Yes (Other)
  Sender: BEIGENE
  Company Number: US-BEIGENE-BGN-2025-008352

PATIENT
  Age: 64 Year

DRUGS (6)
  1. BRUKINSA [Suspect]
     Active Substance: ZANUBRUTINIB
     Indication: Waldenstrom^s macroglobulinaemia
     Dosage: 80 MILLIGRAM, Q12H
  2. DEPAKOTE [Concomitant]
     Active Substance: DIVALPROEX SODIUM
     Indication: Mood swings
     Dosage: 2 TABLETS (1000 MG TOTAL) AT NIGHT
  3. OLANZAPINE [Concomitant]
     Active Substance: OLANZAPINE
  4. KLONOPIN [Concomitant]
     Active Substance: CLONAZEPAM
  5. CYCLOBENZAPRINE [Concomitant]
     Active Substance: CYCLOBENZAPRINE
     Indication: Muscle relaxant therapy
  6. LIDOCAINE [Concomitant]
     Active Substance: LIDOCAINE

REACTIONS (6)
  - Bipolar disorder [Recovered/Resolved]
  - Peripheral swelling [Not Recovered/Not Resolved]
  - Joint swelling [Not Recovered/Not Resolved]
  - Limb asymmetry [Unknown]
  - Vaginal haemorrhage [Not Recovered/Not Resolved]
  - Somnolence [Unknown]
